FAERS Safety Report 9941447 (Version 1)
Quarter: 2014Q1

REPORT INFORMATION
  Report Type: Spontaneous
  Country: FR (occurrence: FR)
  Receive Date: 20140303
  Receipt Date: 20140303
  Transmission Date: 20141002
  Serious: Yes (Hospitalization)
  Sender: FDA-Public Use
  Company Number: FR-TEVA-464374ISR

PATIENT
  Age: 53 Year
  Sex: Male

DRUGS (2)
  1. DOXORUBICINE TEVA [Suspect]
     Dosage: 106 MILLIGRAM DAILY;
     Route: 041
     Dates: start: 20100823, end: 20100823
  2. HOLOXAN [Suspect]
     Dosage: 4000 MILLIGRAM DAILY;
     Route: 041
     Dates: start: 20100824, end: 20100824

REACTIONS (2)
  - Respiratory distress [Recovered/Resolved]
  - Arrhythmia supraventricular [Recovered/Resolved]
